FAERS Safety Report 10156928 (Version 3)
Quarter: 2014Q2

REPORT INFORMATION
  Report Type: Spontaneous
  Country: FR (occurrence: FR)
  Receive Date: 20140507
  Receipt Date: 20140520
  Transmission Date: 20141212
  Serious: Yes (Hospitalization)
  Sender: FDA-Public Use
  Company Number: FR-JNJFOC-20140420591

PATIENT
  Age: 65 Year
  Sex: Female

DRUGS (10)
  1. CONTRAMAL [Suspect]
     Indication: GENERAL ANAESTHESIA
     Route: 065
     Dates: start: 20121119, end: 20121119
  2. SUFENTA [Suspect]
     Indication: GENERAL ANAESTHESIA
     Route: 065
     Dates: start: 20121119, end: 20121119
  3. AUGMENTIN [Suspect]
     Indication: GENERAL ANAESTHESIA
     Route: 065
     Dates: start: 20121119, end: 20121119
  4. DEXAMETHASONE [Suspect]
     Indication: GENERAL ANAESTHESIA
     Route: 042
     Dates: start: 20121119, end: 20121119
  5. DIPRIVAN [Suspect]
     Indication: GENERAL ANAESTHESIA
     Route: 042
     Dates: start: 20121119, end: 20121119
  6. SEVOFLURANE [Suspect]
     Indication: GENERAL ANAESTHESIA
     Route: 065
     Dates: start: 20121119, end: 20121119
  7. PARACETAMOL [Concomitant]
     Indication: PRODUCT USED FOR UNKNOWN INDICATION
     Route: 065
     Dates: start: 20121119
  8. SEROPLEX [Concomitant]
     Indication: PRODUCT USED FOR UNKNOWN INDICATION
     Route: 065
  9. INEXIUM [Concomitant]
     Indication: PRODUCT USED FOR UNKNOWN INDICATION
     Route: 065
  10. ZOPICLONE [Concomitant]
     Indication: PRODUCT USED FOR UNKNOWN INDICATION
     Route: 065

REACTIONS (2)
  - Renal failure acute [Recovered/Resolved]
  - Oliguria [Recovered/Resolved]
